FAERS Safety Report 7046966-5 (Version None)
Quarter: 2010Q4

REPORT INFORMATION
  Report Type: 
  Country: None (occurrence: None)
  Receive Date: 20101015
  Receipt Date: 20101007
  Transmission Date: 20110411
  Serious: Yes (Hospitalization)
  Sender: FDA-Public Use
  Company Number: CH-BRISTOL-MYERS SQUIBB COMPANY-15330228

PATIENT
  Age: 51 Year
  Sex: Female

DRUGS (6)
  1. EFAVIRENZ [Suspect]
     Indication: HIV INFECTION
     Route: 048
     Dates: start: 20071101, end: 20100601
  2. TRUVADA [Suspect]
     Indication: HIV INFECTION
     Dosage: 200-300MG
     Route: 048
     Dates: start: 20071101, end: 20100601
  3. METHADONE [Concomitant]
     Route: 048
  4. SEROQUEL [Concomitant]
     Route: 048
  5. TIATRAL [Concomitant]
     Route: 048
  6. TEMESTA [Concomitant]
     Route: 048

REACTIONS (7)
  - HEPATIC ENZYME INCREASED [None]
  - METABOLIC ACIDOSIS [None]
  - OSTEOPOROSIS [None]
  - OSTEOPOROTIC FRACTURE [None]
  - PANCREATITIS [None]
  - RENAL FAILURE ACUTE [None]
  - RENAL TUBULAR NECROSIS [None]
